FAERS Safety Report 22128440 (Version 1)
Quarter: 2023Q1

REPORT INFORMATION
  Report Type: Spontaneous
  Country: BR (occurrence: BR)
  Receive Date: 20230323
  Receipt Date: 20230323
  Transmission Date: 20230418
  Serious: Yes (Hospitalization, Other)
  Sender: FDA-Public Use
  Company Number: BR-BEIGENE USA INC-BGN-2023-002138

PATIENT

DRUGS (4)
  1. BRUKINSA [Suspect]
     Active Substance: ZANUBRUTINIB
     Indication: Plasma cell myeloma
     Dosage: 160 MILLIGRAM, QD
     Dates: start: 202302
  2. LOSARTAN [Concomitant]
     Active Substance: LOSARTAN
     Indication: Hypertension
     Dosage: 1 TABLET A DAY
  3. PURAN [Concomitant]
     Active Substance: LEVOTHYROXINE SODIUM
     Indication: Thyroid disorder
     Dosage: 1 TABLET A DAY
  4. CORTISONE [Concomitant]
     Active Substance: CORTISONE
     Indication: Liver disorder
     Dosage: 1 TABLET A DAY

REACTIONS (4)
  - Fall [Recovered/Resolved]
  - Femur fracture [Not Recovered/Not Resolved]
  - Prescribed underdose [Unknown]
  - Off label use [Unknown]

NARRATIVE: CASE EVENT DATE: 20230301
